FAERS Safety Report 8872240 (Version 1)
Quarter: 2012Q4

REPORT INFORMATION
  Report Type: 
  Country: US (occurrence: US)
  Receive Date: 20121026
  Receipt Date: 20121026
  Transmission Date: 20130627
  Serious: No
  Sender: FDA-Public Use
  Company Number: US-AMGEN-USASP2012049306

PATIENT
  Age: 57 Year
  Sex: Female
  Weight: 68.03 kg

DRUGS (5)
  1. ENBREL [Suspect]
     Indication: PRODUCT USED FOR UNKNOWN INDICATION
     Dosage: 50 mg, qwk
     Route: 058
  2. LANTUS [Concomitant]
     Dosage: 100/ML UNK, UNK
     Route: 058
  3. NOVOLOG [Concomitant]
     Dosage: 100/ML UNK, UNK
     Route: 058
  4. PREDNISONE [Concomitant]
     Dosage: 10 mg, UNK
     Route: 048
  5. LEFLUNOMIDE [Concomitant]
     Dosage: 10 mg, UNK
     Route: 048

REACTIONS (1)
  - Rash [Unknown]
